FAERS Safety Report 6719709-X (Version None)
Quarter: 2010Q2

REPORT INFORMATION
  Report Type: 
  Country: None (occurrence: None)
  Receive Date: 20100511
  Receipt Date: 20100423
  Transmission Date: 20101027
  Serious: Yes (Death)
  Sender: FDA-Public Use
  Company Number: PHEH2009US18945

PATIENT
  Sex: Female
  Weight: 54.422 kg

DRUGS (2)
  1. GLEEVEC [Suspect]
     Dosage: 400 MG DAILY
     Route: 048
     Dates: start: 20091013
  2. DARVOCET-N 100 [Concomitant]

REACTIONS (1)
  - DEATH [None]
